FAERS Safety Report 23982393 (Version 1)
Quarter: 2024Q2

REPORT INFORMATION
  Report Type: Spontaneous
  Country: CH (occurrence: CH)
  Receive Date: 20240617
  Receipt Date: 20240617
  Transmission Date: 20240716
  Serious: Yes (Other)
  Sender: FDA-Public Use
  Company Number: None

PATIENT
  Age: 78 Year
  Sex: Female
  Weight: 54.9 kg

DRUGS (31)
  1. LISINOPRIL [Suspect]
     Active Substance: LISINOPRIL
     Indication: Hypertension
     Dosage: LISINOPRIL MEPHA, 1-0-0-0
     Route: 048
  2. MORPHINE HYDROCHLORIDE [Concomitant]
     Active Substance: MORPHINE HYDROCHLORIDE
     Indication: Aspiration bone marrow
     Dosage: TIME INTERVAL: TOTAL: IN TOTAL
     Route: 065
     Dates: start: 20240416, end: 20240416
  3. MORPHINE HYDROCHLORIDE [Concomitant]
     Active Substance: MORPHINE HYDROCHLORIDE
     Indication: Aspiration bone marrow
     Dosage: TIME INTERVAL: TOTAL: IN TOTAL
     Route: 065
     Dates: start: 20240408, end: 20240408
  4. BACTRIM [Concomitant]
     Active Substance: SULFAMETHOXAZOLE\TRIMETHOPRIM
     Indication: Product used for unknown indication
     Dosage: TIME INTERVAL: CYCLICAL: CYCLICAL
     Route: 048
     Dates: start: 20240414
  5. VALVERDE SCHLAF [Concomitant]
     Indication: Product used for unknown indication
     Dosage: TIME INTERVAL: TOTAL: IN TOTAL
     Route: 048
     Dates: start: 20240411, end: 20240411
  6. ASPIRIN [Suspect]
     Active Substance: ASPIRIN
     Indication: Product used for unknown indication
     Dosage: 1-0-0-0
     Route: 048
  7. LEVOTHYROXINE [Suspect]
     Active Substance: LEVOTHYROXINE\LEVOTHYROXINE SODIUM
     Indication: Hypothyroidism
     Dosage: TIME INTERVAL: CYCLICAL: 0.05 MG 1-0-0-0 ON MONDAY AND THURSDAY 2-0-0-0 ON OTHER DAYS, CYCLICAL
     Route: 048
  8. ALDACTONE [Suspect]
     Active Substance: SPIRONOLACTONE
     Indication: Hypertension
     Dosage: 1-0-0-0
     Route: 048
  9. ZOLPIDEM [Suspect]
     Active Substance: ZOLPIDEM TARTRATE
     Indication: Product used for unknown indication
     Dosage: TIME INTERVAL: AS NECESSARY: AS NECESSARY, ZOLPIDEM MEPHA
     Route: 048
  10. SIMVASTATIN [Suspect]
     Active Substance: SIMVASTATIN
     Indication: Product used for unknown indication
     Dosage: 1-0-0-0
     Route: 048
  11. VANCOCIN [Concomitant]
     Active Substance: VANCOMYCIN HYDROCHLORIDE
     Indication: Staphylococcal infection
     Dosage: TIME INTERVAL: TOTAL: IN TOTAL
     Route: 065
     Dates: start: 20240409, end: 20240409
  12. VANCOCIN [Concomitant]
     Active Substance: VANCOMYCIN HYDROCHLORIDE
     Indication: Staphylococcal infection
     Dosage: TIME INTERVAL: TOTAL: IN TOTAL
     Route: 065
     Dates: start: 20240408, end: 20240408
  13. CEFEPIME [Concomitant]
     Active Substance: CEFEPIME HYDROCHLORIDE
     Indication: Staphylococcal infection
     Route: 065
     Dates: start: 20240407, end: 20240418
  14. KEFZOL [Concomitant]
     Active Substance: CEFAZOLIN SODIUM
     Indication: Staphylococcal infection
     Route: 065
     Dates: start: 20240419
  15. POSACONAZOLE [Concomitant]
     Active Substance: POSACONAZOLE
     Indication: Product used for unknown indication
     Route: 048
     Dates: start: 20240420
  16. POSACONAZOLE [Concomitant]
     Active Substance: POSACONAZOLE
     Indication: Product used for unknown indication
     Route: 048
     Dates: start: 20240414, end: 20240419
  17. Dormicum [Concomitant]
     Indication: Aspiration bone marrow
     Dosage: TIME INTERVAL: TOTAL: IN TOTAL
     Route: 065
     Dates: start: 20240408, end: 20240408
  18. Dormicum [Concomitant]
     Indication: Aspiration bone marrow
     Dosage: TIME INTERVAL: TOTAL: IN TOTAL
     Route: 065
     Dates: start: 20240416, end: 20240416
  19. FILGRASTIM [Concomitant]
     Active Substance: FILGRASTIM
     Indication: Product used for unknown indication
     Dosage: TIME INTERVAL: TOTAL: (3010*6.[IU])IN TOTAL
     Route: 058
     Dates: start: 20240411, end: 20240411
  20. VISIPAQUE [Concomitant]
     Active Substance: IODIXANOL
     Indication: Computerised tomogram
     Dosage: TIME INTERVAL: 1 TOTAL: TOTAL 110 ML: VISIPAQUE? (IODIXANOL) 652 MG/ML; IN TOTAL
     Route: 065
     Dates: start: 20240408, end: 20240408
  21. DAFALGAN [Suspect]
     Active Substance: ACETAMINOPHEN
     Indication: Product used for unknown indication
     Route: 048
     Dates: start: 20240408, end: 20240413
  22. DEXAMETHASONE [Concomitant]
     Active Substance: DEXAMETHASONE
     Indication: Product used for unknown indication
     Route: 048
     Dates: start: 20240406, end: 20240408
  23. METOPROLOL SUCCINATE [Suspect]
     Active Substance: METOPROLOL SUCCINATE
     Indication: Hypertension
     Dosage: 1-0-0-0
     Route: 048
  24. INTRATECT [Concomitant]
     Active Substance: HUMAN IMMUNOGLOBULIN G
     Indication: Product used for unknown indication
     Dosage: TIME INTERVAL: TOTAL: IN TOTAL
     Route: 065
     Dates: start: 20240406, end: 20240406
  25. ELTROMBOPAG OLAMINE [Concomitant]
     Active Substance: ELTROMBOPAG OLAMINE
     Indication: Product used for unknown indication
     Route: 048
     Dates: start: 20240423
  26. ACETAMINOPHEN [Suspect]
     Active Substance: ACETAMINOPHEN
     Indication: Product used for unknown indication
     Route: 048
     Dates: start: 20240407, end: 20240407
  27. ONDANSETRON [Concomitant]
     Active Substance: ONDANSETRON
     Indication: Product used for unknown indication
     Dosage: TIME INTERVAL: TOTAL: IN TOTAL
     Route: 048
     Dates: start: 20240412, end: 20240412
  28. CYKLOKAPRON [Concomitant]
     Active Substance: TRANEXAMIC ACID
     Indication: Haemorrhage
     Route: 048
     Dates: start: 20240407, end: 20240410
  29. CYCLOSPORINE [Concomitant]
     Active Substance: CYCLOSPORINE
     Indication: Product used for unknown indication
     Route: 048
     Dates: start: 20240412, end: 20240417
  30. CYCLOSPORINE [Concomitant]
     Active Substance: CYCLOSPORINE
     Indication: Product used for unknown indication
     Route: 048
     Dates: start: 20240422
  31. CYCLOSPORINE [Concomitant]
     Active Substance: CYCLOSPORINE
     Indication: Product used for unknown indication
     Route: 048
     Dates: start: 20240417, end: 20240422

REACTIONS (2)
  - Liver disorder [Recovering/Resolving]
  - Renal impairment [Unknown]

NARRATIVE: CASE EVENT DATE: 20240406
